FAERS Safety Report 7754216-7 (Version None)
Quarter: 2011Q3

REPORT INFORMATION
  Report Type: 
  Country: None (occurrence: None)
  Receive Date: 20110915
  Receipt Date: 20110906
  Transmission Date: 20111222
  Serious: Yes (Hospitalization, Other)
  Sender: FDA-Public Use
  Company Number: US-ASTRAZENECA-2011SE53754

PATIENT
  Age: 63 Year
  Sex: Male

DRUGS (1)
  1. TOPROL-XL [Suspect]
     Route: 048
     Dates: start: 19990101

REACTIONS (3)
  - HEART RATE INCREASED [None]
  - TACHYCARDIA [None]
  - DRUG TOLERANCE [None]
